FAERS Safety Report 9263978 (Version 1)
Quarter: 2013Q2

REPORT INFORMATION
  Report Type: Spontaneous
  Country: IT (occurrence: IT)
  Receive Date: 20130430
  Receipt Date: 20130430
  Transmission Date: 20140414
  Serious: Yes (Disabling)
  Sender: FDA-Public Use
  Company Number: IT-GLAXOSMITHKLINE-B0887786A

PATIENT
  Age: 55 Year
  Sex: Female

DRUGS (1)
  1. TALAVIR [Suspect]
     Indication: OPHTHALMIC HERPES ZOSTER
     Dosage: 3G PER DAY
     Route: 048
     Dates: start: 20110902, end: 20110910

REACTIONS (2)
  - Blepharitis [Recovered/Resolved with Sequelae]
  - Meibomianitis [Recovered/Resolved with Sequelae]
